FAERS Safety Report 13770888 (Version 1)
Quarter: 2017Q3

REPORT INFORMATION
  Report Type: Spontaneous
  Country: US (occurrence: US)
  Receive Date: 20170720
  Receipt Date: 20170720
  Transmission Date: 20171127
  Serious: No
  Sender: FDA-Public Use
  Company Number: US-LUPIN PHARMACEUTICALS INC.-2017-01256

PATIENT
  Age: 67 Year
  Sex: Female
  Weight: 72.56 kg

DRUGS (1)
  1. GAVILYTE - N [Suspect]
     Active Substance: POLYETHYLENE GLYCOL 3350\POTASSIUM CHLORIDE\SODIUM BICARBONATE\SODIUM CHLORIDE
     Indication: BOWEL PREPARATION
     Dosage: 420 G, UNK
     Route: 048
     Dates: start: 20170309, end: 20170310

REACTIONS (5)
  - Thinking abnormal [Recovered/Resolved]
  - Feeling abnormal [None]
  - Muscle fatigue [Recovered/Resolved]
  - Muscle tightness [Recovered/Resolved]
  - Myalgia [Recovered/Resolved]

NARRATIVE: CASE EVENT DATE: 20170309
